FAERS Safety Report 13708146 (Version 1)
Quarter: 2017Q2

REPORT INFORMATION
  Report Type: Spontaneous
  Country: US (occurrence: US)
  Receive Date: 20170630
  Receipt Date: 20170630
  Transmission Date: 20170830
  Serious: No
  Sender: FDA-Public Use
  Company Number: US-OSMOTICA_PHARMACEUTICAL_US_LLC-POI0573201700022

PATIENT
  Age: 52 Year
  Sex: Male
  Weight: 105.33 kg

DRUGS (1)
  1. VENLAFAXINE [Suspect]
     Active Substance: VENLAFAXINE HYDROCHLORIDE
     Indication: MOOD SWINGS
     Dates: start: 20170121, end: 20170222

REACTIONS (7)
  - Irritability [Recovered/Resolved]
  - Abdominal discomfort [Recovered/Resolved]
  - Drug ineffective for unapproved indication [Recovered/Resolved]
  - Feeling abnormal [Recovered/Resolved]
  - Paraesthesia [Recovered/Resolved]
  - Dizziness [Recovered/Resolved]
  - Agitation [Recovered/Resolved]

NARRATIVE: CASE EVENT DATE: 20170121
